FAERS Safety Report 23061958 (Version 1)
Quarter: 2023Q4

REPORT INFORMATION
  Report Type: Spontaneous
  Country: US (occurrence: US)
  Receive Date: 20231013
  Receipt Date: 20231013
  Transmission Date: 20240110
  Serious: No
  Sender: FDA-Public Use
  Company Number: US-JNJFOC-20231023555

PATIENT
  Age: 75 Year
  Sex: Male
  Weight: 55.388 kg

DRUGS (2)
  1. XARELTO [Suspect]
     Active Substance: RIVAROXABAN
     Indication: Antiphospholipid syndrome
     Route: 048
  2. XARELTO [Suspect]
     Active Substance: RIVAROXABAN
     Indication: Pulmonary embolism

REACTIONS (4)
  - Gingival discolouration [Unknown]
  - Gingival bleeding [Unknown]
  - Blood blister [Unknown]
  - Erythema [Unknown]
